FAERS Safety Report 6019891-6 (Version None)
Quarter: 2008Q4

REPORT INFORMATION
  Report Type: 
  Country: None (occurrence: None)
  Receive Date: 20081222
  Receipt Date: 20081204
  Transmission Date: 20090506
  Serious: Yes (Death)
  Sender: FDA-Public Use
  Company Number: DSA_81494_2005

PATIENT
  Age: 44 Year
  Sex: Male
  Weight: 115.6672 kg

DRUGS (4)
  1. XYREM [Suspect]
     Indication: INSOMNIA
     Dosage: 8 GM (4 GM, 2 IN 1 D), ORAL
     Route: 048
     Dates: start: 20050921
  2. ALPRAZOLAM [Suspect]
     Indication: GENERALISED ANXIETY DISORDER
     Dosage: 0.5-1 MG)
  3. NORDIAZEPAM [Suspect]
     Indication: DRUG USE FOR UNKNOWN INDICATION
  4. QUETIAPINE FUMARATE [Suspect]
     Indication: DRUG USE FOR UNKNOWN INDICATION

REACTIONS (6)
  - ASPHYXIA [None]
  - COGNITIVE DISORDER [None]
  - DRUG EFFECT DECREASED [None]
  - DRUG INTERACTION [None]
  - OVERDOSE [None]
  - SLEEP PARALYSIS [None]
